FAERS Safety Report 5846552-6 (Version None)
Quarter: 2008Q3

REPORT INFORMATION
  Report Type: 
  Country: None (occurrence: None)
  Receive Date: 20080815
  Receipt Date: 20080804
  Transmission Date: 20090109
  Serious: Yes (Hospitalization)
  Sender: FDA-Public Use
  Company Number: JP-ROCHE-579757

PATIENT
  Age: 50 Year
  Sex: Male

DRUGS (10)
  1. GANCICLOVIR [Suspect]
     Route: 047
     Dates: start: 20070222
  2. GANCICLOVIR [Suspect]
     Dosage: DOSAGE REDUCED AS MAINTAINANCE TREATMENT
     Route: 047
     Dates: start: 20070317, end: 20070322
  3. ZITHROMAX [Suspect]
     Route: 048
     Dates: start: 20060302
  4. ZITHROMAX [Suspect]
     Route: 048
     Dates: start: 20060609
  5. EPIVIR [Suspect]
     Route: 048
     Dates: start: 20060522
  6. PENTAMIDINE [Suspect]
     Indication: DRUG USE FOR UNKNOWN INDICATION
     Route: 055
     Dates: start: 20060510
  7. ZERIT [Concomitant]
     Indication: HIV INFECTION
     Dates: start: 20060522
  8. STOCRIN [Concomitant]
     Indication: HIV INFECTION
     Dates: start: 20060522
  9. DENOSINE [Concomitant]
     Dates: start: 20060524, end: 20060712
  10. ETHAMBUTOL HCL [Concomitant]
     Dates: start: 20080609

REACTIONS (1)
  - BONE MARROW FAILURE [None]
